FAERS Safety Report 26083727 (Version 1)
Quarter: 2025Q4

REPORT INFORMATION
  Report Type: Spontaneous
  Country: US (occurrence: US)
  Receive Date: 20251124
  Receipt Date: 20251124
  Transmission Date: 20260118
  Serious: No
  Sender: INSMED
  Company Number: US-INSMED, INC.-2025-03450-US

PATIENT
  Sex: Female

DRUGS (1)
  1. ARIKAYCE [Suspect]
     Active Substance: AMIKACIN
     Indication: Mycobacterial infection
     Dosage: INHALE THE CONTENTS OF ONE VIAL (590 MG) VIA NEBULIZER ONCE DAILY
     Route: 055
     Dates: start: 20220730

REACTIONS (2)
  - Disease recurrence [Unknown]
  - Cough [Unknown]

NARRATIVE: CASE EVENT DATE: 20240101
